FAERS Safety Report 7250433-3 (Version None)
Quarter: 2011Q1

REPORT INFORMATION
  Report Type: 
  Country: None (occurrence: None)
  Receive Date: 20110118
  Receipt Date: 20101206
  Transmission Date: 20110831
  Serious: Yes (Hospitalization)
  Sender: FDA-Public Use
  Company Number: 2010S1001034

PATIENT
  Age: 46 Year
  Sex: Male

DRUGS (1)
  1. LIVALO [Suspect]
     Indication: DYSLIPIDAEMIA
     Dosage: 2 MG; ; PO
     Route: 048
     Dates: start: 20100713, end: 20101122

REACTIONS (5)
  - OEDEMA [None]
  - OESOPHAGEAL VARICES HAEMORRHAGE [None]
  - ASCITES [None]
  - LIVER INJURY [None]
  - HEPATIC FUNCTION ABNORMAL [None]
